FAERS Safety Report 8164206-0 (Version None)
Quarter: 2012Q1

REPORT INFORMATION
  Report Type: 
  Country: None (occurrence: None)
  Receive Date: 20120224
  Receipt Date: 20120214
  Transmission Date: 20120608
  Serious: Yes (Death, Other)
  Sender: FDA-Public Use
  Company Number: US-PFIZER INC-2012039632

PATIENT
  Age: 18 Year
  Sex: Male

DRUGS (6)
  1. VINCRISTINE [Concomitant]
     Indication: ACUTE LYMPHOCYTIC LEUKAEMIA
     Route: 042
  2. CARBOPLATIN [Suspect]
  3. DAUNORUBICIN [Concomitant]
     Indication: ACUTE LYMPHOCYTIC LEUKAEMIA
  4. ELSPAR [Concomitant]
     Indication: ACUTE LYMPHOCYTIC LEUKAEMIA
  5. METHOTREXATE SODIUM [Suspect]
     Indication: ACUTE LYMPHOCYTIC LEUKAEMIA
  6. MERCAPTOMERIN [Concomitant]
     Indication: ACUTE LYMPHOCYTIC LEUKAEMIA

REACTIONS (9)
  - ISCHAEMIA [None]
  - PRURITUS [None]
  - URINE OUTPUT DECREASED [None]
  - HEPATIC NECROSIS [None]
  - THROMBOCYTOPENIA [None]
  - INFECTION [None]
  - HEPATOTOXICITY [None]
  - HEPATIC CIRRHOSIS [None]
  - MYOCARDIAL HAEMORRHAGE [None]
